FAERS Safety Report 17528054 (Version 1)
Quarter: 2020Q1

REPORT INFORMATION
  Report Type: Spontaneous
  Country: US (occurrence: US)
  Receive Date: 20200311
  Receipt Date: 20200311
  Transmission Date: 20200409
  Serious: No
  Sender: FDA-Public Use
  Company Number: US-ASTRAZENECA-2020SE21634

PATIENT
  Sex: Female

DRUGS (1)
  1. PULMICORT FLEXHALER [Suspect]
     Active Substance: BUDESONIDE
     Indication: ASTHMA
     Dosage: 180 ,2 PUFFS IN THE MORNING AND 2 PUFFS AT NIGHT
     Route: 055
     Dates: start: 20190127

REACTIONS (3)
  - Dyspnoea [Not Recovered/Not Resolved]
  - Device issue [Unknown]
  - Product dose omission [Not Recovered/Not Resolved]
